FAERS Safety Report 18423670 (Version 1)
Quarter: 2020Q4

REPORT INFORMATION
  Report Type: Spontaneous
  Country: US (occurrence: US)
  Receive Date: 20201024
  Receipt Date: 20201024
  Transmission Date: 20210114
  Serious: Yes (Death, Life-Threatening, Hospitalization, Other)
  Sender: FDA-Public Use
  Company Number: US-MACLEODS PHARMACEUTICALS US LTD-MAC2020028725

PATIENT

DRUGS (2)
  1. METFORMIN [Suspect]
     Active Substance: METFORMIN HYDROCHLORIDE
     Indication: PRODUCT USED FOR UNKNOWN INDICATION
     Dosage: 60 DOSAGE FORM, SINGLE, INGESTION
     Route: 065
  2. HYDROCHLOROTHIAZIDE/LISINOPRIL [Suspect]
     Active Substance: HYDROCHLOROTHIAZIDE\LISINOPRIL
     Indication: PRODUCT USED FOR UNKNOWN INDICATION
     Dosage: UNK UNK, SINGLE, 20?25 TABLETS
     Route: 065

REACTIONS (8)
  - Toxicity to various agents [Unknown]
  - Acute kidney injury [Unknown]
  - Overdose [Unknown]
  - Lactic acidosis [Recovering/Resolving]
  - Pulseless electrical activity [Fatal]
  - Depressed level of consciousness [Unknown]
  - Hypotension [Unknown]
  - Respiratory failure [Unknown]
